FAERS Safety Report 19026729 (Version 2)
Quarter: 2021Q3

REPORT INFORMATION
  Report Type: Report from Study
  Country: JP (occurrence: JP)
  Receive Date: 20210318
  Receipt Date: 20210826
  Transmission Date: 20211014
  Serious: Yes (Other)
  Sender: FDA-Public Use
  Company Number: JP-PFIZER INC-2021277308

PATIENT
  Age: 46 Year
  Sex: Male

DRUGS (3)
  1. MEKTOVI [Suspect]
     Active Substance: BINIMETINIB
     Indication: RECTAL CANCER
     Dosage: UNK UNK, CYCLIC
     Route: 048
     Dates: start: 20210216
  2. BRAFTOVI [Suspect]
     Active Substance: ENCORAFENIB
     Indication: RECTAL CANCER
     Dosage: UNK UNK, CYCLIC
     Route: 048
     Dates: start: 20210216
  3. CETUXIMAB RECOMBINANT [Concomitant]
     Active Substance: CETUXIMAB
     Indication: RECTAL CANCER
     Dosage: UNK UNK, CYCLIC
     Route: 048
     Dates: start: 20210216

REACTIONS (8)
  - Nausea [Unknown]
  - Serous retinal detachment [Unknown]
  - Aspartate aminotransferase increased [Unknown]
  - Alanine aminotransferase increased [Unknown]
  - Eye disorder [Unknown]
  - Diarrhoea [Unknown]
  - Myalgia [Unknown]
  - Dermatitis acneiform [Unknown]
